FAERS Safety Report 12458875 (Version 1)
Quarter: 2016Q2

REPORT INFORMATION
  Report Type: Spontaneous
  Country: US (occurrence: US)
  Receive Date: 20160613
  Receipt Date: 20160613
  Transmission Date: 20160815
  Serious: No
  Sender: FDA-Public Use
  Company Number: US-BRISTOL-MYERS SQUIBB COMPANY-BMS-2016-044788

PATIENT
  Sex: Female

DRUGS (2)
  1. ELIQUIS [Suspect]
     Active Substance: APIXABAN
     Indication: CEREBROVASCULAR ACCIDENT PROPHYLAXIS
     Dosage: 5 MG, BID
     Route: 065
     Dates: start: 20160601, end: 20160602
  2. ELIQUIS [Suspect]
     Active Substance: APIXABAN
     Dates: start: 20160601, end: 20160602

REACTIONS (9)
  - Arthralgia [Unknown]
  - Pain [Unknown]
  - Headache [Unknown]
  - Eye irritation [Unknown]
  - Depression [Unknown]
  - Contusion [Unknown]
  - Disorientation [Unknown]
  - Dizziness [Unknown]
  - Back pain [Unknown]
